FAERS Safety Report 7402030-4 (Version None)
Quarter: 2011Q2

REPORT INFORMATION
  Report Type: 
  Country: None (occurrence: None)
  Receive Date: 20110408
  Receipt Date: 20110405
  Transmission Date: 20111010
  Serious: Yes (Other)
  Sender: FDA-Public Use
  Company Number: US-PFIZER INC-2011066072

PATIENT
  Sex: Female
  Weight: 74.83 kg

DRUGS (6)
  1. DIFLUCAN [Suspect]
     Dosage: 400MG DAILY
     Dates: start: 20110401
  2. SYMBICORT [Concomitant]
     Indication: ASTHMA
  3. DIFLUCAN [Suspect]
     Indication: OESOPHAGEAL INFECTION
     Dosage: 200MG DAILY
     Route: 042
  4. MICAFUNGIN SODIUM [Suspect]
     Indication: OESOPHAGEAL INFECTION
     Dosage: UNK
     Route: 042
     Dates: start: 20110310, end: 20110320
  5. DIFLUCAN [Suspect]
     Dosage: 400MG DAILY
     Route: 042
  6. SYMBICORT [Concomitant]
     Indication: CHRONIC OBSTRUCTIVE PULMONARY DISEASE
     Dosage: UNK
     Route: 055

REACTIONS (17)
  - DYSPNOEA [None]
  - FOOD CRAVING [None]
  - CONSTIPATION [None]
  - DECREASED APPETITE [None]
  - DRUG INEFFECTIVE [None]
  - CHILLS [None]
  - CONFUSIONAL STATE [None]
  - OESOPHAGEAL INFECTION [None]
  - NAUSEA [None]
  - ASTHENIA [None]
  - WEIGHT DECREASED [None]
  - LUNG INFECTION [None]
  - PAIN IN EXTREMITY [None]
  - HEADACHE [None]
  - SOMNOLENCE [None]
  - BACK PAIN [None]
  - FATIGUE [None]
